FAERS Safety Report 6068813-0 (Version None)
Quarter: 2009Q1

REPORT INFORMATION
  Report Type: 
  Country: None (occurrence: None)
  Receive Date: 20090203
  Receipt Date: 20090121
  Transmission Date: 20090719
  Serious: No
  Sender: FDA-Public Use
  Company Number: 005457

PATIENT
  Age: 87 Year
  Sex: Female

DRUGS (1)
  1. PLETAL [Suspect]
     Dosage: 100 MG ORAL
     Route: 048
     Dates: start: 20081222

REACTIONS (2)
  - BLOOD PRESSURE FLUCTUATION [None]
  - PALPITATIONS [None]
